FAERS Safety Report 14840766 (Version 1)
Quarter: 2018Q2

REPORT INFORMATION
  Report Type: Spontaneous
  Country: US (occurrence: US)
  Receive Date: 20180503
  Receipt Date: 20180503
  Transmission Date: 20180711
  Serious: No
  Sender: FDA-Public Use
  Company Number: US-PFIZER INC-2018177226

PATIENT
  Age: 62 Year
  Sex: Female

DRUGS (3)
  1. METFORMIN [Concomitant]
     Active Substance: METFORMIN HYDROCHLORIDE
     Dosage: UNK, 2X/DAY
  2. LYRICA [Suspect]
     Active Substance: PREGABALIN
     Indication: NEUROPATHY PERIPHERAL
     Dosage: 75 MG, 3X/DAY
  3. INSULIN [Concomitant]
     Active Substance: INSULIN NOS
     Dosage: 60 MG, ONE TIME BEFORE GO TO BED

REACTIONS (4)
  - Hypersensitivity [Unknown]
  - Cough [Unknown]
  - Sneezing [Unknown]
  - Drug effect incomplete [Unknown]
